FAERS Safety Report 6660376-1 (Version None)
Quarter: 2010Q1

REPORT INFORMATION
  Report Type: 
  Country: None (occurrence: None)
  Receive Date: 20100330
  Receipt Date: 20100330
  Transmission Date: 20100710
  Serious: Yes (Hospitalization)
  Sender: FDA-Public Use
  Company Number: None

PATIENT
  Age: 71 Year
  Sex: Female
  Weight: 32.2054 kg

DRUGS (1)
  1. AVELOX [Suspect]
     Indication: SINUSITIS
     Dosage: TAKE ONCE DAY
     Dates: start: 20100226

REACTIONS (11)
  - DYSSTASIA [None]
  - EAR PAIN [None]
  - ERYTHEMA [None]
  - HYPOPHAGIA [None]
  - LOSS OF CONSCIOUSNESS [None]
  - NAUSEA [None]
  - PALPITATIONS [None]
  - PRURITUS [None]
  - SINUS DISORDER [None]
  - THROAT TIGHTNESS [None]
  - VOMITING [None]
